FAERS Safety Report 7608862-1 (Version None)
Quarter: 2011Q3

REPORT INFORMATION
  Report Type: 
  Country: None (occurrence: None)
  Receive Date: 20110714
  Receipt Date: 20110712
  Transmission Date: 20111222
  Serious: No
  Sender: FDA-Public Use
  Company Number: US-PFIZER INC-2011157546

PATIENT
  Sex: Male
  Weight: 86.168 kg

DRUGS (1)
  1. ALAVERT [Suspect]
     Indication: NASOPHARYNGITIS
     Dosage: 10 MG, DAILY
     Route: 048
     Dates: start: 20110711

REACTIONS (1)
  - DRUG INEFFECTIVE [None]
